FAERS Safety Report 14566691 (Version 3)
Quarter: 2018Q2

REPORT INFORMATION
  Report Type: Spontaneous
  Country: JP (occurrence: JP)
  Receive Date: 20180223
  Receipt Date: 20180607
  Transmission Date: 20180711
  Serious: Yes (Hospitalization)
  Sender: FDA-Public Use
  Company Number: JP-AMGEN-JPNSP2018024958

PATIENT
  Age: 79 Year
  Sex: Female
  Weight: 48 kg

DRUGS (1)
  1. PRALIA [Suspect]
     Active Substance: DENOSUMAB
     Indication: OSTEOPOROSIS
     Dosage: 60 MG, Q6MO
     Route: 058
     Dates: start: 20170913

REACTIONS (1)
  - Atypical femur fracture [Recovering/Resolving]

NARRATIVE: CASE EVENT DATE: 20180207
